FAERS Safety Report 4336997-8 (Version None)
Quarter: 2004Q1

REPORT INFORMATION
  Report Type: 
  Country: None (occurrence: None)
  Receive Date: 20040329
  Receipt Date: 20040120
  Transmission Date: 20041129
  Serious: No
  Sender: FDA-Public Use
  Company Number: USA040157025

PATIENT
  Age: 22 Year
  Sex: Male
  Weight: 75 kg

DRUGS (2)
  1. STRATTERA [Suspect]
     Indication: ATTENTION DEFICIT/HYPERACTIVITY DISORDER
     Dosage: 80 MG/DAY
     Dates: start: 20031226, end: 20040118
  2. MULTI-VITAMIN [Concomitant]

REACTIONS (3)
  - DRUG INEFFECTIVE [None]
  - TESTICULAR PAIN [None]
  - TESTICULAR SWELLING [None]
